FAERS Safety Report 24710972 (Version 2)
Quarter: 2024Q4

REPORT INFORMATION
  Report Type: Spontaneous
  Country: US (occurrence: US)
  Receive Date: 20241209
  Receipt Date: 20241221
  Transmission Date: 20250114
  Serious: Yes (Life-Threatening, Hospitalization)
  Sender: TEVA
  Company Number: US-TEVA-VS-3271983

PATIENT
  Age: 50 Year
  Sex: Female

DRUGS (1)
  1. GEMCITABINE [Suspect]
     Active Substance: GEMCITABINE
     Indication: Female reproductive neoplasm
     Route: 065

REACTIONS (4)
  - Thrombotic microangiopathy [Recovering/Resolving]
  - Thrombocytopenia [Recovering/Resolving]
  - Anaemia [Recovering/Resolving]
  - Acute kidney injury [Recovering/Resolving]
